FAERS Safety Report 20730762 (Version 1)
Quarter: 2022Q2

REPORT INFORMATION
  Report Type: Spontaneous
  Country: US (occurrence: US)
  Receive Date: 20220420
  Receipt Date: 20220420
  Transmission Date: 20220720
  Serious: No
  Sender: FDA-Public Use
  Company Number: US-ASTELLAS-2021US026220

PATIENT
  Age: 8 Decade
  Sex: Female

DRUGS (4)
  1. LEXISCAN [Suspect]
     Active Substance: REGADENOSON
     Indication: Coronary artery disease
     Dosage: UNK, UNKNOWN FREQ. (0.4MG/5ML) (ONCE)
     Route: 042
     Dates: start: 20210708, end: 20210708
  2. LEXISCAN [Suspect]
     Active Substance: REGADENOSON
     Indication: Coronary artery disease
     Dosage: UNK, UNKNOWN FREQ. (0.4MG/5ML) (ONCE)
     Route: 042
     Dates: start: 20210708, end: 20210708
  3. LEXISCAN [Suspect]
     Active Substance: REGADENOSON
     Indication: Coronary artery disease
     Dosage: UNK, UNKNOWN FREQ. (0.4MG/5ML) (ONCE)
     Route: 042
     Dates: start: 20210708, end: 20210708
  4. LEXISCAN [Suspect]
     Active Substance: REGADENOSON
     Indication: Coronary artery disease
     Dosage: UNK, UNKNOWN FREQ. (0.4MG/5ML) (ONCE)
     Route: 042
     Dates: start: 20210708, end: 20210708

REACTIONS (5)
  - Injection site discolouration [Recovered/Resolved]
  - Throat irritation [Recovered/Resolved]
  - Throat tightness [Recovered/Resolved]
  - Injection site pain [Recovered/Resolved]
  - Product use in unapproved indication [Unknown]

NARRATIVE: CASE EVENT DATE: 20210708
